FAERS Safety Report 9425053 (Version 1)
Quarter: 2013Q3

REPORT INFORMATION
  Report Type: Spontaneous
  Country: NL (occurrence: NL)
  Receive Date: 20130729
  Receipt Date: 20130729
  Transmission Date: 20140515
  Serious: Yes (Other)
  Sender: FDA-Public Use
  Company Number: NL-PFIZER INC-2013217752

PATIENT
  Age: 37 Year
  Sex: Male
  Weight: 185 kg

DRUGS (2)
  1. SERTRALINE [Suspect]
     Indication: PANIC DISORDER
     Dosage: 50 MG, 2X/DAY
     Dates: start: 2006
  2. SERTRALINE [Suspect]
     Dosage: UNK

REACTIONS (15)
  - Suicidal ideation [Unknown]
  - Drug dependence [Not Recovered/Not Resolved]
  - Aggression [Unknown]
  - Depersonalisation [Unknown]
  - Confusional state [Unknown]
  - Withdrawal syndrome [Unknown]
  - Mental disorder [Unknown]
  - Speech disorder [Unknown]
  - Libido decreased [Unknown]
  - Diarrhoea [Unknown]
  - Weight increased [Unknown]
  - Pyrexia [Unknown]
  - Irritability [Unknown]
  - Tremor [Unknown]
  - Insomnia [Unknown]
